FAERS Safety Report 4850957-X (Version None)
Quarter: 2005Q4

REPORT INFORMATION
  Report Type: 
  Country: None (occurrence: None)
  Receive Date: 20051209
  Receipt Date: 20051209
  Transmission Date: 20060501
  Serious: Yes (Hospitalization)
  Sender: FDA-Public Use
  Company Number: None

PATIENT
  Age: 78 Year
  Sex: Male
  Weight: 51 kg

DRUGS (1)
  1. IRINOTECAN HCL [Suspect]
     Indication: COLON CANCER METASTATIC
     Dosage: 210MG EVERY WEEK IV
     Route: 042

REACTIONS (3)
  - ABDOMINAL PAIN [None]
  - DEHYDRATION [None]
  - POST PROCEDURAL DIARRHOEA [None]
